FAERS Safety Report 14326483 (Version 5)
Quarter: 2018Q4

REPORT INFORMATION
  Report Type: Report from Study
  Country: DE (occurrence: DE)
  Receive Date: 20171227
  Receipt Date: 20181008
  Transmission Date: 20190204
  Serious: Yes (Hospitalization)
  Sender: FDA-Public Use
  Company Number: DE-ROCHE-2041599

PATIENT
  Age: 84 Year
  Sex: Male
  Weight: 62.3 kg

DRUGS (14)
  1. BRISERIN [Concomitant]
     Indication: HYPERTENSION
     Route: 048
  2. FOLINIC ACID [Concomitant]
     Active Substance: LEUCOVORIN
     Indication: COLORECTAL CANCER
     Dosage: 490-700 MG
     Route: 042
     Dates: start: 20160512, end: 20170119
  3. DEXAMETHASON [Concomitant]
     Active Substance: DEXAMETHASONE
     Indication: DECREASED APPETITE
     Route: 046
     Dates: start: 20161215
  4. PEGYLATED LIPOSOMAL IRINOTECAN [Suspect]
     Active Substance: IRINOTECAN HYDROCHLORIDE
     Indication: COLORECTAL CANCER
     Dosage: 315 MG
     Route: 042
     Dates: start: 20160512
  5. 5-FLUOROURACIL [Suspect]
     Active Substance: FLUOROURACIL
     Indication: COLORECTAL CANCER
     Dosage: 490-700 MG
     Route: 040
     Dates: start: 20160512, end: 20170119
  6. PREDNISOLON [Concomitant]
     Active Substance: PREDNISOLONE
     Dosage: MOSTR ECENT DOSE WAS RECEIVED ON 10/FEB/2017
     Route: 042
     Dates: start: 20170203, end: 20170210
  7. 5-FLUOROURACIL [Suspect]
     Active Substance: FLUOROURACIL
     Dosage: 2990-4200 MG
     Route: 041
     Dates: start: 20160512, end: 20170120
  8. SPASMEX (GERMANY) [Concomitant]
     Indication: PRODUCT USED FOR UNKNOWN INDICATION
     Route: 048
  9. PREDNISOLON [Concomitant]
     Active Substance: PREDNISOLONE
     Indication: MUCOSAL INFLAMMATION
     Route: 042
     Dates: start: 20170130, end: 20170202
  10. CLEXANE [Concomitant]
     Active Substance: ENOXAPARIN SODIUM
     Indication: THROMBOSIS PROPHYLAXIS
     Route: 058
     Dates: start: 20160512, end: 2017
  11. PEGYLATED LIPOSOMAL IRINOTECAN [Suspect]
     Active Substance: IRINOTECAN HYDROCHLORIDE
     Dosage: 220 MG
     Route: 042
     Dates: start: 20170119, end: 20170119
  12. DIFLUCAN [Concomitant]
     Active Substance: FLUCONAZOLE
     Indication: MUCOSAL INFLAMMATION
     Route: 046
     Dates: start: 20170130, end: 20170219
  13. BEVACIZUMAB. [Suspect]
     Active Substance: BEVACIZUMAB
     Route: 042
     Dates: start: 20170119, end: 20170119
  14. BEVACIZUMAB. [Suspect]
     Active Substance: BEVACIZUMAB
     Indication: COLORECTAL CANCER
     Route: 042
     Dates: start: 20160512

REACTIONS (4)
  - Oral pain [Recovered/Resolved]
  - Condition aggravated [Not Recovered/Not Resolved]
  - Fatigue [Not Recovered/Not Resolved]
  - Decreased appetite [Not Recovered/Not Resolved]

NARRATIVE: CASE EVENT DATE: 20161215
